FAERS Safety Report 8478362-8 (Version None)
Quarter: 2012Q2

REPORT INFORMATION
  Report Type: 
  Country: None (occurrence: None)
  Receive Date: 20120629
  Receipt Date: 20120628
  Transmission Date: 20120825
  Serious: Yes (Life-Threatening, Hospitalization, Other)
  Sender: FDA-Public Use
  Company Number: AU-PFIZER INC-2009US-29188

PATIENT
  Age: 49 Year
  Sex: Male

DRUGS (4)
  1. DIAZEPAM [Suspect]
     Dosage: 50 X 5 MG
  2. VERAPAMIL HCL [Suspect]
     Dosage: UNK
  3. MORPHINE [Suspect]
     Dosage: 20 X 30 MG, UNK
  4. TRAMADOL HCL [Suspect]
     Dosage: 15 X 200 MG, UNK

REACTIONS (12)
  - ATAXIA [None]
  - VASCULAR RESISTANCE SYSTEMIC DECREASED [None]
  - INTENTIONAL OVERDOSE [None]
  - DISORIENTATION [None]
  - DYSARTHRIA [None]
  - TOXICITY TO VARIOUS AGENTS [None]
  - ASTHENIA [None]
  - HAEMODYNAMIC INSTABILITY [None]
  - CARDIAC INDEX INCREASED [None]
  - NODAL RHYTHM [None]
  - SOMNOLENCE [None]
  - HYPOTENSION [None]
